FAERS Safety Report 4302436-6 (Version None)
Quarter: 2004Q1

REPORT INFORMATION
  Report Type: 
  Country: None (occurrence: None)
  Receive Date: 20040223
  Receipt Date: 20040218
  Transmission Date: 20041129
  Serious: Yes (Hospitalization)
  Sender: FDA-Public Use
  Company Number: 04-02-0251

PATIENT
  Age: 50 Year
  Sex: Male

DRUGS (1)
  1. CLOZAPINE [Suspect]
     Dosage: 125-425MG QD ORAL
     Route: 048
     Dates: start: 19990701

REACTIONS (2)
  - CIRCULATORY COLLAPSE [None]
  - RESPIRATORY ARREST [None]
